FAERS Safety Report 8439089 (Version 2)
Quarter: 2013Q2

REPORT INFORMATION
  Report Type: Spontaneous
  Country: US (occurrence: None)
  Receive Date: 20120104
  Receipt Date: 20120508
  Transmission Date: 20140414
  Serious: Yes (Other)
  Sender: FDA-Public Use
  Company Number: 2011HGS-002904

PATIENT
  Age: 56 Year
  Sex: Female
  Weight: 109.77 kg

DRUGS (5)
  1. BENLYSTA [Suspect]
     Indication: SYSTEMIC LUPUS ERYTHEMATOSUS
     Route: 041
     Dates: start: 20110929, end: 20111125
  2. PRILOSEC (OMEPRAZOLE) (OMEPRAZOLE) [Concomitant]
  3. FOSAMAX [Concomitant]
  4. CALCIUM WITH VITAMIN D(ERGOCALCIFEROL, CALCIUM PHOSPHATE, CALCIUM SODIUM LACTATE) [Concomitant]
  5. MULTIVITAMIN(MULTIVITAMINS)(ERGOCALCIFEROL, ASCORBIC ACID, FOLIC ACID, THIAMINE HYDROCHLORIDE, RETI [Concomitant]

REACTIONS (12)
  - HYPOAESTHESIA [None]
  - BRONCHITIS [None]
  - SINUSITIS [None]
  - PAIN IN EXTREMITY [None]
  - Balance disorder [None]
  - Grip strength decreased [None]
  - Back pain [None]
  - Gait disturbance [None]
  - Pain in extremity [None]
  - Hypoaesthesia [None]
  - Hypoaesthesia [None]
  - Hypoaesthesia [None]
